FAERS Safety Report 6262478-0 (Version None)
Quarter: 2009Q3

REPORT INFORMATION
  Report Type: 
  Country: None (occurrence: None)
  Receive Date: 20090709
  Receipt Date: 20090703
  Transmission Date: 20100115
  Serious: No
  Sender: FDA-Public Use
  Company Number: US-B.I. PHARMACEUTICALS,INC./RIDGEFIELD-2009-BP-08117BP

PATIENT
  Age: 57 Year
  Sex: Male

DRUGS (1)
  1. FLOMAX [Suspect]
     Indication: URINE ABNORMALITY
     Dosage: 0.4 MG
     Route: 048
     Dates: start: 20090501, end: 20090701

REACTIONS (4)
  - FACIAL PAIN [None]
  - LIP SWELLING [None]
  - RHINALGIA [None]
  - SENSITIVITY OF TEETH [None]
